FAERS Safety Report 7829385-0 (Version None)
Quarter: 2011Q4

REPORT INFORMATION
  Report Type: 
  Country: None (occurrence: None)
  Receive Date: 20111020
  Receipt Date: 20111005
  Transmission Date: 20120403
  Serious: Yes (Hospitalization)
  Sender: FDA-Public Use
  Company Number: FR-ROCHE-1002568

PATIENT
  Age: 57 Year
  Sex: Female

DRUGS (2)
  1. XELODA [Suspect]
     Indication: PRODUCT USED FOR UNKNOWN INDICATION
     Route: 048
     Dates: start: 20101102, end: 20101130
  2. PHENYTOIN SODIUM [Interacting]
     Indication: PRODUCT USED FOR UNKNOWN INDICATION
     Route: 048

REACTIONS (4)
  - CEREBELLAR SYNDROME [None]
  - VERTIGO [None]
  - DRUG INTERACTION [None]
  - HEADACHE [None]
